FAERS Safety Report 21512577 (Version 1)
Quarter: 2022Q4

REPORT INFORMATION
  Report Type: Spontaneous
  Country: EG (occurrence: None)
  Receive Date: 20221027
  Receipt Date: 20221027
  Transmission Date: 20230112
  Serious: Yes (Other)
  Sender: FDA-Public Use
  Company Number: EG-Hikma Pharmaceuticals-EG-H14001-22-02783

PATIENT
  Age: 65 Year
  Sex: Female

DRUGS (2)
  1. CARBOPLATIN [Suspect]
     Active Substance: CARBOPLATIN
     Indication: Ovarian cancer
     Route: 041
     Dates: start: 202201
  2. GEMZAR [Concomitant]
     Active Substance: GEMCITABINE HYDROCHLORIDE
     Indication: Ovarian cancer
     Dosage: UNKNOWN
     Route: 041

REACTIONS (5)
  - Dizziness [Unknown]
  - Malaise [Unknown]
  - Chills [Unknown]
  - Erythema [Unknown]
  - Drug hypersensitivity [Unknown]

NARRATIVE: CASE EVENT DATE: 20220101
